FAERS Safety Report 18391275 (Version 2)
Quarter: 2020Q4

REPORT INFORMATION
  Report Type: Other
  Country: AT (occurrence: AT)
  Receive Date: 20201016
  Receipt Date: 20201026
  Transmission Date: 20210114
  Serious: Yes (Hospitalization, Other)
  Sender: FDA-Public Use
  Company Number: AT-ROCHE-2691601

PATIENT
  Age: 64 Year
  Sex: Female
  Weight: 99 kg

DRUGS (22)
  1. ATORVASTATIN [Concomitant]
     Active Substance: ATORVASTATIN
  2. CANDESARTAN. [Concomitant]
     Active Substance: CANDESARTAN
  3. DUROGESIC [Concomitant]
     Active Substance: FENTANYL
  4. ONDANSAN [Concomitant]
     Active Substance: ONDANSETRON HYDROCHLORIDE
     Dosage: PRN (AS?NEEDED)
     Dates: start: 20200921
  5. ZARZIO [Concomitant]
     Active Substance: FILGRASTIM
     Dosage: PRN (AS?NEEDED)
     Dates: start: 20201005
  6. ETOPOSIDE. [Suspect]
     Active Substance: ETOPOSIDE
     Indication: PRODUCT USED FOR UNKNOWN INDICATION
     Route: 065
  7. GLICLAZIDE [Concomitant]
     Active Substance: GLICLAZIDE
  8. TIZANIDIN [Concomitant]
     Active Substance: TIZANIDINE HYDROCHLORIDE
  9. RED BLOOD CELLS, CONCENTRATED [Concomitant]
     Active Substance: HUMAN RED BLOOD CELL
     Dosage: PRN (AS?NEEDED)
     Dates: start: 20201005
  10. ATEZOLIZUMAB. [Suspect]
     Active Substance: ATEZOLIZUMAB
     Indication: PRODUCT USED FOR UNKNOWN INDICATION
     Dosage: MOST RECENT DOSE RECEIVED ON 21/SEP/2020.
     Route: 041
  11. CARBOPLATIN. [Suspect]
     Active Substance: CARBOPLATIN
     Indication: PRODUCT USED FOR UNKNOWN INDICATION
     Route: 065
  12. PANTOLOC [Concomitant]
     Active Substance: PANTOPRAZOLE SODIUM
     Indication: PROPHYLAXIS
  13. ZOLDEM [Concomitant]
     Active Substance: ZOLPIDEM TARTRATE
     Dates: start: 20201007
  14. CYKLOKAPRON [Concomitant]
     Active Substance: TRANEXAMIC ACID
     Indication: HAEMOPTYSIS
     Dates: start: 20201005
  15. LINAGLIPTIN [Concomitant]
     Active Substance: LINAGLIPTIN
  16. TRITTICO [Concomitant]
     Active Substance: TRAZODONE HYDROCHLORIDE
  17. CONCOR [Concomitant]
     Active Substance: BISOPROLOL FUMARATE
     Dates: start: 20200918
  18. PLATELETS [Concomitant]
     Active Substance: HUMAN PLATELET, ALLOGENIC
     Dosage: PRN (AS?NEEDED)
     Dates: start: 20201005
  19. BRIMICA GENUAIR [Concomitant]
     Active Substance: ACLIDINIUM BROMIDE\FORMOTEROL FUMARATE
  20. LIXIANA [Concomitant]
     Active Substance: EDOXABAN TOSYLATE
     Dates: start: 20200918
  21. NOVALGIN (AUSTRIA) [Concomitant]
     Dosage: PRN (AS?NEEDED)
  22. THYREX [Concomitant]
     Active Substance: LEVOTHYROXINE SODIUM

REACTIONS (7)
  - Decreased appetite [Not Recovered/Not Resolved]
  - C-reactive protein increased [Not Recovered/Not Resolved]
  - Electrocardiogram QT prolonged [Not Recovered/Not Resolved]
  - Hypophosphataemia [Not Recovered/Not Resolved]
  - Pancytopenia [Not Recovered/Not Resolved]
  - Hypokalaemia [Not Recovered/Not Resolved]
  - Hypocalcaemia [Not Recovered/Not Resolved]

NARRATIVE: CASE EVENT DATE: 20201005
